FAERS Safety Report 9196494 (Version 1)
Quarter: 2013Q1

REPORT INFORMATION
  Report Type: Spontaneous
  Country: US (occurrence: None)
  Receive Date: 20120709
  Receipt Date: 20120709
  Transmission Date: 20140127
  Serious: No
  Sender: FDA-Public Use
  Company Number: 2012HGS-003569

PATIENT
  Sex: Female

DRUGS (1)
  1. BENLYSTA [Suspect]

REACTIONS (1)
  - Infusion site pain [None]
